FAERS Safety Report 10211642 (Version 1)
Quarter: 2014Q2

REPORT INFORMATION
  Report Type: Spontaneous
  Country: US (occurrence: US)
  Receive Date: 20140602
  Receipt Date: 20140602
  Transmission Date: 20141212
  Serious: No
  Sender: FDA-Public Use
  Company Number: US-GLAXOSMITHKLINE-A1060680A

PATIENT
  Sex: Male

DRUGS (1)
  1. FABIOR [Suspect]
     Indication: ACNE
     Route: 061

REACTIONS (6)
  - Chemical injury [Unknown]
  - Skin irritation [Unknown]
  - Skin burning sensation [Unknown]
  - Pain [Unknown]
  - Skin exfoliation [Unknown]
  - Erythema [Unknown]
